FAERS Safety Report 7629413-1 (Version None)
Quarter: 2011Q3

REPORT INFORMATION
  Report Type: 
  Country: None (occurrence: None)
  Receive Date: 20110722
  Receipt Date: 20110708
  Transmission Date: 20111222
  Serious: Yes (Other)
  Sender: FDA-Public Use
  Company Number: US-JNJFOC-20110708176

PATIENT
  Sex: Female

DRUGS (2)
  1. EXTRA STRENGTH TYLENOL [Suspect]
     Route: 048
  2. EXTRA STRENGTH TYLENOL [Suspect]
     Indication: ANALGESIC THERAPY
     Dosage: 10-12 CAPLETS PER DAY, FOR 2 WEEKS
     Route: 048

REACTIONS (2)
  - OVERDOSE [None]
  - FLUID RETENTION [None]
